FAERS Safety Report 4463492-8 (Version None)
Quarter: 2004Q3

REPORT INFORMATION
  Report Type: 
  Country: None (occurrence: None)
  Receive Date: 20040930
  Receipt Date: 20040727
  Transmission Date: 20050211
  Serious: Yes (Hospitalization, Other)
  Sender: FDA-Public Use
  Company Number: US-MERCK-0407USA02281

PATIENT
  Age: 71 Year
  Sex: Male

DRUGS (11)
  1. DECADRON [Suspect]
     Indication: MULTIPLE MYELOMA
     Route: 048
  2. DILTIAZEM HYDROCHLORIDE [Concomitant]
     Route: 065
  3. LOVENOX [Concomitant]
     Route: 065
  4. PROCRIT [Concomitant]
     Route: 065
  5. LASIX [Concomitant]
     Route: 065
  6. NEURONTIN [Concomitant]
     Route: 065
  7. INSULIN [Concomitant]
     Route: 065
  8. PROTONIX [Concomitant]
     Route: 065
  9. ZOSYN [Concomitant]
     Route: 065
  10. POTASSIUM (UNSPECIFIED) [Concomitant]
     Route: 065
  11. THALOMID [Suspect]
     Indication: MULTIPLE MYELOMA
     Route: 048
     Dates: start: 20031001

REACTIONS (19)
  - ASTHENIA [None]
  - ATRIAL FIBRILLATION [None]
  - CHOLECYSTITIS [None]
  - CHOLECYSTITIS ACUTE [None]
  - CONFUSIONAL STATE [None]
  - DEEP VEIN THROMBOSIS [None]
  - FATIGUE [None]
  - HAEMATOCRIT DECREASED [None]
  - HAEMOGLOBIN DECREASED [None]
  - HYPOTENSION [None]
  - MALAISE [None]
  - MULTIPLE MYELOMA [None]
  - PNEUMONIA [None]
  - PROTHROMBIN TIME PROLONGED [None]
  - PULMONARY EMBOLISM [None]
  - PYREXIA [None]
  - RASH VESICULAR [None]
  - RESPIRATORY FAILURE [None]
  - UPPER GASTROINTESTINAL HAEMORRHAGE [None]
